FAERS Safety Report 11375470 (Version 2)
Quarter: 2015Q3

REPORT INFORMATION
  Report Type: Spontaneous
  Country: FR (occurrence: FR)
  Receive Date: 20150813
  Receipt Date: 20150817
  Transmission Date: 20151125
  Serious: Yes (Death, Hospitalization, Other)
  Sender: FDA-Public Use
  Company Number: FR-ASTRAZENECA-2015SE77239

PATIENT
  Age: 13691 Day
  Sex: Female

DRUGS (13)
  1. OLANZAPINE. [Suspect]
     Active Substance: OLANZAPINE
     Route: 048
     Dates: start: 201507, end: 201507
  2. VALIUM [Concomitant]
     Active Substance: DIAZEPAM
     Dosage: PROGRESSIVE INCREASE OF DOSE FROM 15 MG TO 30 MG
     Route: 048
     Dates: start: 20150213
  3. THERALENE [Suspect]
     Active Substance: TRIMEPRAZINE
     Route: 048
     Dates: start: 20140610, end: 20150303
  4. TERCIAN [Concomitant]
     Active Substance: CYAMEMAZINE
  5. ATARAX [Concomitant]
     Active Substance: HYDROXYZINE\HYDROXYZINE HYDROCHLORIDE
     Route: 048
     Dates: start: 20120106
  6. ZOPICLONE [Concomitant]
     Active Substance: ZOPICLONE
     Route: 048
     Dates: start: 20120124
  7. LYSANXIA [Concomitant]
     Active Substance: PRAZEPAM
     Route: 048
     Dates: start: 20120106, end: 20150223
  8. ABILIFY [Suspect]
     Active Substance: ARIPIPRAZOLE
     Indication: ABNORMAL BEHAVIOUR
     Route: 048
     Dates: start: 20150117, end: 20150224
  9. ABILIFY [Suspect]
     Active Substance: ARIPIPRAZOLE
     Indication: ABNORMAL BEHAVIOUR
     Route: 048
     Dates: start: 20150224, end: 20150227
  10. LOXAPAC [Suspect]
     Active Substance: LOXAPINE SUCCINATE
     Indication: ABNORMAL BEHAVIOUR
     Route: 048
     Dates: start: 20120106, end: 20150206
  11. LOXAPAC [Suspect]
     Active Substance: LOXAPINE SUCCINATE
     Indication: ABNORMAL BEHAVIOUR
     Route: 048
     Dates: start: 20150504, end: 20150507
  12. PARKINANE [Concomitant]
     Active Substance: TRIHEXYPHENIDYL HYDROCHLORIDE
     Dates: start: 20120619, end: 20150227
  13. XEROQUEL [Suspect]
     Active Substance: QUETIAPINE FUMARATE
     Indication: ABNORMAL BEHAVIOUR
     Route: 048
     Dates: start: 20130402, end: 20150206

REACTIONS (23)
  - Muscle spasticity [Unknown]
  - Malnutrition [Unknown]
  - Neutrophil count increased [Unknown]
  - Blood sodium increased [Unknown]
  - Respiratory disorder [Unknown]
  - Septic shock [Unknown]
  - Dyskinesia [Fatal]
  - Neurological decompensation [Fatal]
  - Blood glucose increased [Unknown]
  - Blood creatinine decreased [Unknown]
  - Fall [Unknown]
  - Negativism [Unknown]
  - Akathisia [Unknown]
  - Nuclear magnetic resonance imaging brain abnormal [Unknown]
  - Feeding disorder [Unknown]
  - Rhabdomyolysis [Unknown]
  - Pneumonia aspiration [Unknown]
  - Haemodynamic instability [Unknown]
  - Extrapyramidal disorder [Not Recovered/Not Resolved]
  - Hypoxia [Unknown]
  - Dysphagia [Unknown]
  - Decubitus ulcer [Unknown]
  - Dehydration [Unknown]

NARRATIVE: CASE EVENT DATE: 20150206
